FAERS Safety Report 16077357 (Version 1)
Quarter: 2019Q1

REPORT INFORMATION
  Report Type: Spontaneous
  Country: GB (occurrence: GB)
  Receive Date: 20190315
  Receipt Date: 20190315
  Transmission Date: 20190418
  Serious: Yes (Other)
  Sender: FDA-Public Use
  Company Number: GB-TEVA-2019-GB-1022059

PATIENT
  Age: 88 Year

DRUGS (4)
  1. MIRTAZAPINE. [Suspect]
     Active Substance: MIRTAZAPINE
     Dosage: 15 MILLIGRAM DAILY; ON NIGHT.
     Route: 048
     Dates: start: 201812
  2. ADCAL [Concomitant]
     Active Substance: CALCIUM CARBONATE
  3. PARACETAMOL [Concomitant]
     Active Substance: ACETAMINOPHEN
  4. FLUOXETINE [Concomitant]
     Active Substance: FLUOXETINE HYDROCHLORIDE
     Dates: end: 201812

REACTIONS (2)
  - Libido increased [Recovered/Resolved with Sequelae]
  - Disinhibition [Recovered/Resolved with Sequelae]

NARRATIVE: CASE EVENT DATE: 201812
